FAERS Safety Report 13813255 (Version 1)
Quarter: 2017Q3

REPORT INFORMATION
  Report Type: Spontaneous
  Country: US (occurrence: US)
  Receive Date: 20170729
  Receipt Date: 20170729
  Transmission Date: 20171127
  Serious: Yes (Hospitalization, Other)
  Sender: FDA-Public Use
  Company Number: US-TEVA-792684ACC

PATIENT
  Age: 67 Year
  Sex: Male

DRUGS (20)
  1. SPIRIVA [Concomitant]
     Active Substance: TIOTROPIUM BROMIDE MONOHYDRATE
     Dates: end: 201612
  2. TAMSULOSIN [Concomitant]
     Active Substance: TAMSULOSIN
  3. ANORO ELLIPTA [Suspect]
     Active Substance: UMECLIDINIUM BROMIDE\VILANTEROL TRIFENATATE
     Indication: CHRONIC OBSTRUCTIVE PULMONARY DISEASE
     Dosage: 1 PUFF PER DAY
     Dates: start: 201612
  4. GABAPENTIN. [Concomitant]
     Active Substance: GABAPENTIN
  5. SENNA [Concomitant]
     Active Substance: SENNA LEAF\SENNOSIDES\SENNOSIDES A AND B
  6. OMEPRAZOLE. [Concomitant]
     Active Substance: OMEPRAZOLE
  7. FOLIC ACID. [Concomitant]
     Active Substance: FOLIC ACID
  8. ATORVASTATIN [Concomitant]
     Active Substance: ATORVASTATIN
  9. IRON [Concomitant]
     Active Substance: IRON
  10. LORATADINE. [Concomitant]
     Active Substance: LORATADINE
  11. METOPROLOL. [Concomitant]
     Active Substance: METOPROLOL
  12. OXYCODONE [Concomitant]
     Active Substance: OXYCODONE
  13. RANITIDINE. [Concomitant]
     Active Substance: RANITIDINE
  14. VENTOLIN HFA [Suspect]
     Active Substance: ALBUTEROL SULFATE
     Indication: CHRONIC OBSTRUCTIVE PULMONARY DISEASE
     Dosage: 1 PUFF, TWICE PER DAY
     Dates: start: 2008
  15. DULOXETINE. [Concomitant]
     Active Substance: DULOXETINE
  16. VOLTAREN [Concomitant]
     Active Substance: DICLOFENAC SODIUM
  17. FENTANYL. [Concomitant]
     Active Substance: FENTANYL
  18. QVAR [Suspect]
     Active Substance: BECLOMETHASONE DIPROPIONATE
     Indication: CHRONIC OBSTRUCTIVE PULMONARY DISEASE
     Dosage: 160 MICROGRAM DAILY; 2 PUFFS PER DAY
     Dates: start: 2008, end: 201612
  19. LISINOPRIL. [Concomitant]
     Active Substance: LISINOPRIL
  20. SIMETHICONE (DIMETHICONE) [Concomitant]
     Active Substance: DIMETHICONE

REACTIONS (13)
  - Pain in extremity [Not Recovered/Not Resolved]
  - Lung neoplasm malignant [Recovered/Resolved]
  - Cerebrovascular accident [Recovered/Resolved]
  - Surgery [Recovered/Resolved]
  - Spinal column stenosis [Not Recovered/Not Resolved]
  - Condition aggravated [Not Recovered/Not Resolved]
  - Dyspnoea [Not Recovered/Not Resolved]
  - Muscular weakness [Not Recovered/Not Resolved]
  - Product use in unapproved indication [Unknown]
  - Throat cancer [Recovered/Resolved]
  - Recurrent cancer [Recovered/Resolved]
  - Drug ineffective [Unknown]
  - Wrong technique in product usage process [Unknown]

NARRATIVE: CASE EVENT DATE: 201406
